FAERS Safety Report 5518279-1 (Version None)
Quarter: 2007Q4

REPORT INFORMATION
  Report Type: 
  Country: None (occurrence: None)
  Receive Date: 20071115
  Receipt Date: 20071114
  Transmission Date: 20080405
  Serious: Yes (Life-Threatening, Hospitalization)
  Sender: FDA-Public Use
  Company Number: B0495231A

PATIENT
  Age: 89 Year
  Sex: Female

DRUGS (4)
  1. CEFUROXIME SODIUM [Suspect]
     Indication: SEPSIS
     Route: 042
     Dates: start: 20070921, end: 20070921
  2. BENDROFLUMETHIAZIDE [Concomitant]
     Indication: HYPERTENSION
     Dosage: 2.5MG PER DAY
     Route: 048
     Dates: start: 20070910
  3. CITALOPRAM HYDROBROMIDE [Concomitant]
     Indication: DEPRESSION
     Dosage: 20MG PER DAY
     Route: 048
     Dates: start: 20070910
  4. FERROUS SULFATE TAB [Concomitant]
     Dosage: 600MG PER DAY
     Route: 048
     Dates: start: 20070917

REACTIONS (2)
  - ANAEMIA [None]
  - HYPERTENSION [None]
